FAERS Safety Report 20232583 (Version 2)
Quarter: 2022Q3

REPORT INFORMATION
  Report Type: Spontaneous
  Country: US (occurrence: US)
  Receive Date: 20211227
  Receipt Date: 20220706
  Transmission Date: 20221026
  Serious: Yes (Other)
  Sender: FDA-Public Use
  Company Number: US-PFIZER INC-202101798181

PATIENT
  Age: 77 Year
  Sex: Female

DRUGS (2)
  1. IBRANCE [Suspect]
     Active Substance: PALBOCICLIB
     Dosage: 125 MG
  2. IBRANCE [Suspect]
     Active Substance: PALBOCICLIB
     Dosage: 125 MG, CYCLIC (TAKE ONCE DAILY WITH FOOD ON DAYS 1-14 OF EACH 28 DAY CYCLE)
     Route: 048

REACTIONS (5)
  - Dementia [Unknown]
  - Off label use [Unknown]
  - Product use issue [Unknown]
  - Visual impairment [Unknown]
  - Hypoacusis [Unknown]
